FAERS Safety Report 9990328 (Version 1)
Quarter: 2014Q1

REPORT INFORMATION
  Report Type: Spontaneous
  Country: US (occurrence: US)
  Receive Date: 20140310
  Receipt Date: 20140310
  Transmission Date: 20141002
  Serious: Yes (Death)
  Sender: FDA-Public Use
  Company Number: US-DRREDDYS-USA/USA/14/0038744

PATIENT
  Age: 91 Year
  Sex: Female

DRUGS (15)
  1. AUGMENTIN [Suspect]
     Indication: CHOLECYSTITIS ACUTE
     Route: 065
  2. AUGMENTIN [Suspect]
     Indication: BILIARY FISTULA
  3. AUGMENTIN [Suspect]
     Indication: SEPSIS
  4. VANCOMYCIN [Suspect]
     Indication: CHOLECYSTITIS ACUTE
     Route: 065
  5. VANCOMYCIN [Suspect]
     Indication: BILIARY FISTULA
  6. VANCOMYCIN [Suspect]
     Indication: SEPSIS
  7. PIPERACILLIN/TAZOBACTAM [Suspect]
     Indication: CHOLECYSTITIS ACUTE
     Route: 065
  8. PIPERACILLIN/TAZOBACTAM [Suspect]
     Indication: BILIARY FISTULA
  9. PIPERACILLIN/TAZOBACTAM [Suspect]
     Indication: SEPSIS
  10. CEFTAZIDIME [Suspect]
     Indication: CHOLECYSTITIS ACUTE
     Route: 065
  11. CEFTAZIDIME [Suspect]
     Indication: BILIARY FISTULA
  12. CEFTAZIDIME [Suspect]
     Indication: SEPSIS
  13. AMPICILLIN/SULBACTAM [Suspect]
     Indication: CHOLECYSTITIS ACUTE
     Route: 065
  14. AMPICILLIN/SULBACTAM [Suspect]
     Indication: BILIARY FISTULA
  15. AMPICILLIN/SULBACTAM [Suspect]
     Indication: SEPSIS

REACTIONS (1)
  - Linear IgA disease [Fatal]
